FAERS Safety Report 17875692 (Version 12)
Quarter: 2023Q2

REPORT INFORMATION
  Report Type: Spontaneous
  Country: DE (occurrence: DE)
  Receive Date: 20200609
  Receipt Date: 20230529
  Transmission Date: 20230722
  Serious: Yes (Hospitalization, Other)
  Sender: FDA-Public Use
  Company Number: DE-ROCHE-2183622

PATIENT
  Age: 49 Year
  Sex: Female

DRUGS (17)
  1. CALCIUM [Suspect]
     Active Substance: CALCIUM
     Indication: Product used for unknown indication
     Dosage: UNK (EFFERVESCENT TABLET)
     Route: 065
     Dates: start: 20190419
  2. CALCIUM [Suspect]
     Active Substance: CALCIUM
     Dosage: UNK
     Route: 065
     Dates: end: 20190419
  3. CALCIUM [Suspect]
     Active Substance: CALCIUM
     Dosage: UNK
     Route: 065
     Dates: end: 20190419
  4. CORTISONE [Suspect]
     Active Substance: CORTISONE
     Indication: Premedication
     Dosage: 200 MG, QD FOR 4 DAYS (TABLET)
     Route: 065
     Dates: start: 20191201
  5. CORTISONE [Suspect]
     Active Substance: CORTISONE
     Dosage: 500 MG (FOR 4 DAYS)
     Route: 065
     Dates: start: 20191201
  6. CORTISONE [Suspect]
     Active Substance: CORTISONE
     Dosage: 500 MG
     Route: 065
  7. CORTISONE [Suspect]
     Active Substance: CORTISONE
     Dosage: 500 MG
     Route: 065
  8. CORTISONE [Suspect]
     Active Substance: CORTISONE
     Dosage: 500 MG
     Route: 065
  9. CORTISONE [Suspect]
     Active Substance: CORTISONE
     Dosage: 500 MG
     Route: 065
  10. CORTISONE [Suspect]
     Active Substance: CORTISONE
     Dosage: 500 MG
     Route: 065
  11. DULOXETINE [Suspect]
     Active Substance: DULOXETINE
     Indication: Product used for unknown indication
     Dosage: 30 MG, QD, 0-0-1
     Route: 065
  12. TIOTROPIUM BROMIDE [Concomitant]
     Active Substance: TIOTROPIUM BROMIDE
     Indication: Product used for unknown indication
     Dosage: UNK (IN THE MORNING)
     Route: 065
  13. DIAZEPAM [Concomitant]
     Active Substance: DIAZEPAM
     Indication: Product used for unknown indication
     Dosage: 0.5 DOSAGE FORM
     Route: 065
  14. DIAZEPAM [Concomitant]
     Active Substance: DIAZEPAM
     Dosage: AS REQUIRED
     Route: 065
  15. IBANDRONIC ACID [Concomitant]
     Active Substance: IBANDRONIC ACID
     Indication: Product used for unknown indication
     Dosage: 150 MG, QMO
     Route: 065
  16. CHOLECALCIFEROL [Concomitant]
     Active Substance: CHOLECALCIFEROL
     Indication: Product used for unknown indication
     Dosage: 20000 IU, QW
     Route: 065
  17. OXAZEPAM [Concomitant]
     Active Substance: OXAZEPAM
     Indication: Product used for unknown indication
     Dosage: 0.5 DOSAGE FORM, PRN
     Route: 065

REACTIONS (40)
  - Fracture [Recovered/Resolved]
  - Fall [Unknown]
  - Emphysema [Not Recovered/Not Resolved]
  - Multiple sclerosis relapse [Recovered/Resolved]
  - Groin abscess [Recovered/Resolved]
  - Myalgia [Recovered/Resolved]
  - Aggression [Recovered/Resolved]
  - Vocal cord leukoplakia [Recovered/Resolved]
  - Hyperhidrosis [Recovered/Resolved]
  - Muscle spasms [Recovered/Resolved]
  - Migraine [Recovered/Resolved]
  - Dyspnoea [Recovered/Resolved]
  - Initial insomnia [Recovered/Resolved]
  - Disturbance in attention [Recovered/Resolved]
  - Hyperventilation [Recovered/Resolved]
  - Nasopharyngitis [Recovered/Resolved]
  - Dizziness [Recovered/Resolved]
  - Palpitations [Not Recovered/Not Resolved]
  - Paranasal sinus discomfort [Recovered/Resolved]
  - Nervousness [Recovered/Resolved]
  - Apathy [Not Recovered/Not Resolved]
  - Asthenia [Recovering/Resolving]
  - Pelvic pain [Not Recovered/Not Resolved]
  - Back pain [Not Recovered/Not Resolved]
  - Abdominal distension [Recovered/Resolved]
  - Sensory disturbance [Recovered/Resolved]
  - Blood urine present [Recovered/Resolved]
  - Pruritus [Recovered/Resolved]
  - Cognitive disorder [Recovered/Resolved]
  - Feeling cold [Recovered/Resolved]
  - Visual impairment [Recovered/Resolved]
  - Ataxia [Not Recovered/Not Resolved]
  - Pruritus [Recovered/Resolved]
  - Cystitis noninfective [Recovered/Resolved]
  - Pulpitis dental [Recovered/Resolved]
  - Back pain [Recovered/Resolved]
  - Back pain [Recovered/Resolved]
  - Vomiting [Recovered/Resolved]
  - Nausea [Recovered/Resolved]
  - Constipation [Recovered/Resolved]

NARRATIVE: CASE EVENT DATE: 20180830
